FAERS Safety Report 14984930 (Version 1)
Quarter: 2018Q2

REPORT INFORMATION
  Report Type: Spontaneous
  Country: US (occurrence: US)
  Receive Date: 20180607
  Receipt Date: 20180607
  Transmission Date: 20180711
  Serious: Yes (Other)
  Sender: FDA-Public Use
  Company Number: US-MYLANLABS-2018M1037897

PATIENT
  Age: 60 Year
  Sex: Male

DRUGS (1)
  1. HEPARIN [Suspect]
     Active Substance: HEPARIN SODIUM
     Indication: ATRIAL THROMBOSIS
     Route: 065

REACTIONS (2)
  - Blood blister [Recovering/Resolving]
  - Dermatitis bullous [Recovering/Resolving]
